FAERS Safety Report 24564714 (Version 1)
Quarter: 2024Q4

REPORT INFORMATION
  Report Type: Spontaneous
  Country: IN (occurrence: IN)
  Receive Date: 20241030
  Receipt Date: 20241030
  Transmission Date: 20250115
  Serious: Yes (Hospitalization)
  Sender: MYLAN
  Company Number: IN-MYLANLABS-2024M1098390

PATIENT
  Age: 34 Year
  Sex: Male

DRUGS (5)
  1. METHOTREXATE [Suspect]
     Active Substance: METHOTREXATE
     Indication: Spondylitis
     Dosage: UNK
     Route: 065
  2. KAYEXALATE [Suspect]
     Active Substance: SODIUM POLYSTYRENE SULFONATE
     Indication: Hyperkalaemia
     Dosage: UNK
     Route: 065
  3. KAYEXALATE [Suspect]
     Active Substance: SODIUM POLYSTYRENE SULFONATE
     Indication: Renal disorder
  4. SEVELAMER [Suspect]
     Active Substance: SEVELAMER
     Indication: Blood phosphorus increased
     Dosage: UNK
     Route: 065
  5. SEVELAMER [Suspect]
     Active Substance: SEVELAMER
     Indication: Renal disorder

REACTIONS (1)
  - Enterocolitis [Recovering/Resolving]
